FAERS Safety Report 4319983-3 (Version None)
Quarter: 2004Q1

REPORT INFORMATION
  Report Type: 
  Country: None (occurrence: None)
  Receive Date: 20040317
  Receipt Date: 20040310
  Transmission Date: 20041129
  Serious: Yes (Death)
  Sender: FDA-Public Use
  Company Number: US-JNJFOC-20040302788

PATIENT
  Age: 51 Year
  Sex: Male

DRUGS (1)
  1. PANCREASE (PANCRELIPASE) [Suspect]

REACTIONS (1)
  - DEATH [None]
